FAERS Safety Report 5774289-0 (Version None)
Quarter: 2008Q2

REPORT INFORMATION
  Report Type: 
  Country: None (occurrence: None)
  Receive Date: 20080616
  Receipt Date: 20080606
  Transmission Date: 20081010
  Serious: Yes (Hospitalization)
  Sender: FDA-Public Use
  Company Number: FR-PFIZER INC-2005173224

PATIENT
  Sex: Male

DRUGS (3)
  1. SU-011,248 [Suspect]
     Indication: RENAL CELL CARCINOMA
     Route: 048
  2. SU-011,248 [Suspect]
  3. DOLIPRANE [Concomitant]
     Route: 048

REACTIONS (3)
  - METABOLIC DISORDER [None]
  - RENAL DISORDER [None]
  - THROMBOCYTOPENIA [None]
